FAERS Safety Report 5315278-X (Version None)
Quarter: 2007Q2

REPORT INFORMATION
  Report Type: 
  Country: None (occurrence: None)
  Receive Date: 20070502
  Receipt Date: 20070420
  Transmission Date: 20071010
  Serious: Yes (Other)
  Sender: FDA-Public Use
  Company Number: US-PFIZER INC-2007032602

PATIENT
  Sex: Female
  Weight: 73.9 kg

DRUGS (10)
  1. CHANTIX [Suspect]
     Indication: EX-SMOKER
  2. SPIRIVA [Suspect]
     Indication: RESPIRATORY DISORDER
     Route: 055
     Dates: start: 20070413, end: 20070418
  3. ALL OTHER THERAPEUTIC PRODUCTS [Concomitant]
     Indication: HYPERTENSION
  4. NEXIUM [Concomitant]
  5. VITAMIN B COMPLEX WITH C [Concomitant]
  6. VITAMIN E [Concomitant]
  7. ACETYLSALICYLIC ACID SRT [Concomitant]
  8. PROMETRIUM [Concomitant]
  9. VIVELLE-DOT [Concomitant]
  10. ZETIA [Concomitant]
     Indication: BLOOD CHOLESTEROL INCREASED

REACTIONS (8)
  - BACK PAIN [None]
  - CHOLELITHIASIS [None]
  - COUGH [None]
  - FLATULENCE [None]
  - HEPATOMEGALY [None]
  - MUSCULOSKELETAL PAIN [None]
  - MUSCULOSKELETAL STIFFNESS [None]
  - PARAESTHESIA [None]
